FAERS Safety Report 21083109 (Version 1)
Quarter: 2022Q3

REPORT INFORMATION
  Report Type: Spontaneous
  Country: US (occurrence: None)
  Receive Date: 20220714
  Receipt Date: 20220714
  Transmission Date: 20221027
  Serious: Yes (Hospitalization)
  Sender: FDA-Public Use
  Company Number: None

PATIENT
  Age: 84 Year
  Sex: Male

DRUGS (2)
  1. RIVAROXABAN [Suspect]
     Active Substance: RIVAROXABAN
     Dates: start: 20220404
  2. APIXABAN [Suspect]
     Active Substance: APIXABAN

REACTIONS (3)
  - Haemorrhagic stroke [None]
  - Wrong product administered [None]
  - Product administration error [None]

NARRATIVE: CASE EVENT DATE: 20220404
